FAERS Safety Report 13328324 (Version 4)
Quarter: 2017Q1

REPORT INFORMATION
  Report Type: Report from Study
  Country: US (occurrence: US)
  Receive Date: 20170313
  Receipt Date: 20170329
  Transmission Date: 20170428
  Serious: Yes (Other)
  Sender: FDA-Public Use
  Company Number: PHHY2016US172696

PATIENT
  Age: 38 Year
  Sex: Female
  Weight: 112 kg

DRUGS (3)
  1. SIGNIFOR [Suspect]
     Active Substance: PASIREOTIDE
     Indication: PITUITARY-DEPENDENT CUSHING^S SYNDROME
     Dosage: 0.3 MG, UNK
     Route: 058
  2. LEVOTHYROXINE. [Suspect]
     Active Substance: LEVOTHYROXINE
     Indication: HYPOTHYROIDISM
     Dosage: 100 MG, UNK
     Route: 048
  3. LISINOPRIL TABLETS [Suspect]
     Active Substance: LISINOPRIL
     Indication: HYPERTENSION
     Dosage: 10 MG, UNK
     Route: 048

REACTIONS (14)
  - Vision blurred [Unknown]
  - Paraesthesia [Unknown]
  - Body mass index increased [Unknown]
  - Chest pain [Unknown]
  - Paraesthesia oral [Unknown]
  - Fatigue [Unknown]
  - Nausea [Unknown]
  - Syncope [Recovering/Resolving]
  - Balance disorder [Unknown]
  - Dyspnoea [Unknown]
  - Vertigo [Unknown]
  - Dizziness [Unknown]
  - Secondary hypothyroidism [Unknown]
  - Muscular weakness [Unknown]

NARRATIVE: CASE EVENT DATE: 201607
